FAERS Safety Report 17588291 (Version 2)
Quarter: 2020Q2

REPORT INFORMATION
  Report Type: Spontaneous
  Country: SE (occurrence: SE)
  Receive Date: 20200327
  Receipt Date: 20200415
  Transmission Date: 20200713
  Serious: Yes (Other)
  Sender: FDA-Public Use
  Company Number: SE-SUN PHARMACEUTICAL INDUSTRIES LTD-2020RR-241703

PATIENT
  Sex: Male

DRUGS (5)
  1. LAMOTRIGINE. [Suspect]
     Active Substance: LAMOTRIGINE
     Indication: EPILEPSY
     Dosage: 200 MILLIGRAM, DAILY
     Route: 064
  2. ZONEGRAN [Suspect]
     Active Substance: ZONISAMIDE
     Indication: EPILEPSY
     Dosage: 300 MILLIGRAM, DAILY
     Route: 064
  3. LAMOTRIGINE. [Suspect]
     Active Substance: LAMOTRIGINE
     Dosage: 600 MILLIGRAM, DAILY
     Route: 064
  4. LEVETIRACETAM. [Suspect]
     Active Substance: LEVETIRACETAM
     Dosage: 2000 MILLIGRAM, DAILY
     Route: 064
  5. LEVETIRACETAM. [Suspect]
     Active Substance: LEVETIRACETAM
     Indication: EPILEPSY
     Dosage: 1500 MILLIGRAM, DAILY
     Route: 064

REACTIONS (5)
  - Foetal growth restriction [Unknown]
  - Foetal exposure during pregnancy [Unknown]
  - Premature baby [Unknown]
  - Congenital inguinal hernia [Recovered/Resolved]
  - Assisted delivery [Recovered/Resolved]

NARRATIVE: CASE EVENT DATE: 201905
